FAERS Safety Report 20349989 (Version 9)
Quarter: 2022Q1

REPORT INFORMATION
  Report Type: Report from Study
  Country: CN (occurrence: None)
  Receive Date: 20220119
  Receipt Date: 20220325
  Transmission Date: 20220424
  Serious: Yes (Hospitalization)
  Sender: FDA-Public Use
  Company Number: CN-Eisai Medical Research-EC-2022-106877

PATIENT
  Age: 58 Year
  Sex: Male
  Weight: 80 kg

DRUGS (22)
  1. LENVATINIB [Suspect]
     Active Substance: LENVATINIB
     Indication: Non-small cell lung cancer metastatic
     Route: 048
     Dates: start: 20211105
  2. PEMBROLIZUMAB [Suspect]
     Active Substance: PEMBROLIZUMAB
     Indication: Non-small cell lung cancer metastatic
     Route: 041
     Dates: start: 20211105, end: 20211105
  3. PEMBROLIZUMAB [Suspect]
     Active Substance: PEMBROLIZUMAB
     Route: 041
     Dates: start: 20211126
  4. PEMETREXED [Suspect]
     Active Substance: PEMETREXED
     Indication: Non-small cell lung cancer metastatic
     Route: 041
     Dates: start: 20211105, end: 20211105
  5. PEMETREXED [Suspect]
     Active Substance: PEMETREXED
     Route: 041
     Dates: start: 20211126
  6. CARBOPLATIN [Suspect]
     Active Substance: CARBOPLATIN
     Indication: Non-small cell lung cancer metastatic
     Dosage: DOSE: AUC 5MG/ML/MIN
     Route: 041
     Dates: start: 20211105, end: 20211105
  7. CARBOPLATIN [Suspect]
     Active Substance: CARBOPLATIN
     Dosage: DOSE: AUC 5MG/ML/MIN
     Route: 041
     Dates: start: 20211126
  8. HYDROCHLOROTHIAZIDE\IRBESARTAN [Concomitant]
     Active Substance: HYDROCHLOROTHIAZIDE\IRBESARTAN
     Dates: start: 20060101
  9. DEXAMETHASONE ACETATE [Concomitant]
     Active Substance: DEXAMETHASONE ACETATE
     Dates: start: 20211104, end: 20211106
  10. PYRIDOXINE [Concomitant]
     Active Substance: PYRIDOXINE
     Dates: start: 20211105, end: 20211105
  11. PALONOSETRON HYDROCHLORIDE [Concomitant]
     Active Substance: PALONOSETRON HYDROCHLORIDE
     Dates: start: 20211105, end: 20211105
  12. OMEPRAZOLE SODIUM [Concomitant]
     Active Substance: OMEPRAZOLE SODIUM
     Dates: start: 20211105, end: 20211119
  13. INSULIN NOS [Concomitant]
     Active Substance: INSULIN NOS
     Route: 042
     Dates: start: 20211105, end: 20211105
  14. ONDANSETRON HYDROCHLORIDE [Concomitant]
     Active Substance: ONDANSETRON HYDROCHLORIDE
     Dates: start: 20211106, end: 20211111
  15. OMEPRAZOLE [Concomitant]
     Active Substance: OMEPRAZOLE
     Dates: start: 20211106, end: 20211119
  16. LEUCOGEN [Concomitant]
     Active Substance: LEUCOGEN
     Dates: start: 20211106, end: 20211122
  17. BETAMETHASONE SODIUM PHOSPHATE [Concomitant]
     Active Substance: BETAMETHASONE SODIUM PHOSPHATE
     Dates: start: 20211119, end: 20211119
  18. GRANULOCYTE COLONY-STIMULATING FACTOR NOS [Concomitant]
     Active Substance: GRANULOCYTE COLONY-STIMULATING FACTOR NOS
     Route: 058
     Dates: start: 20211119, end: 20211119
  19. GLUTATHIONE [Concomitant]
     Active Substance: GLUTATHIONE
     Route: 058
     Dates: start: 20211119, end: 20211119
  20. OPRELVEKIN [Concomitant]
     Active Substance: OPRELVEKIN
     Route: 058
     Dates: start: 20211119, end: 20211119
  21. FELODIPINE [Concomitant]
     Active Substance: FELODIPINE
     Dates: start: 20060101
  22. FOLIC ACID [Concomitant]
     Active Substance: FOLIC ACID
     Dates: start: 20211102

REACTIONS (1)
  - Anaemia [Recovering/Resolving]

NARRATIVE: CASE EVENT DATE: 20211119
